FAERS Safety Report 6862804-5 (Version None)
Quarter: 2010Q3

REPORT INFORMATION
  Report Type: 
  Country: None (occurrence: None)
  Receive Date: 20100721
  Receipt Date: 20100712
  Transmission Date: 20110219
  Serious: Yes (Other)
  Sender: FDA-Public Use
  Company Number: US-ASTRAZENECA-2010SE32297

PATIENT
  Age: 58 Year
  Sex: Female
  Weight: 104.3 kg

DRUGS (5)
  1. CRESTOR [Suspect]
     Indication: FLUID RETENTION
     Route: 048
  2. CRESTOR [Suspect]
     Indication: SKIN DISCOLOURATION
     Route: 048
  3. LIPITOR [Suspect]
     Indication: BLOOD CHOLESTEROL INCREASED
     Route: 048
     Dates: start: 20090101, end: 20090101
  4. FUROSEMIDE [Suspect]
  5. CLARITIN [Suspect]

REACTIONS (7)
  - BLOOD CHOLESTEROL INCREASED [None]
  - BODY HEIGHT DECREASED [None]
  - DIABETES MELLITUS [None]
  - DRUG INEFFECTIVE [None]
  - GOUT [None]
  - HEADACHE [None]
  - ILL-DEFINED DISORDER [None]
